FAERS Safety Report 9118387 (Version 1)
Quarter: 2013Q1

REPORT INFORMATION
  Report Type: Spontaneous
  Country: IR (occurrence: None)
  Receive Date: 20130128
  Receipt Date: 20130128
  Transmission Date: 20140127
  Serious: Yes (Death, Life-Threatening)
  Sender: FDA-Public Use
  Company Number: FK201300137

PATIENT
  Age: 26 Year
  Sex: Male

DRUGS (5)
  1. VANCOMYCIN [Suspect]
     Indication: STAPHYLOCOCCAL INFECTION
  2. HYDROCORTISONE (HYDOCORTISONE) [Concomitant]
  3. CIPROFLOXACIN (CIPROFLOXACIN) [Concomitant]
  4. METRONIDAZOLE (METRONIDAZOLE) [Concomitant]
  5. KETOCONAZOLE (KETOCONAZOLE) [Concomitant]

REACTIONS (2)
  - Respiratory distress [None]
  - Acinetobacter test positive [None]
